FAERS Safety Report 22236214 (Version 1)
Quarter: 2023Q2

REPORT INFORMATION
  Report Type: Spontaneous
  Country: US (occurrence: US)
  Receive Date: 20230420
  Receipt Date: 20230420
  Transmission Date: 20230721
  Serious: No
  Sender: FDA-Public Use
  Company Number: US-LUNDBECK-DKLU3059602

PATIENT
  Age: 41 Year
  Sex: Male

DRUGS (1)
  1. VYEPTI [Suspect]
     Active Substance: EPTINEZUMAB-JJMR
     Indication: Migraine
     Route: 041
     Dates: start: 20220901

REACTIONS (2)
  - Influenza like illness [Unknown]
  - Arthralgia [Unknown]

NARRATIVE: CASE EVENT DATE: 20220902
